FAERS Safety Report 6860271-9 (Version None)
Quarter: 2010Q3

REPORT INFORMATION
  Report Type: 
  Country: None (occurrence: None)
  Receive Date: 20100720
  Receipt Date: 20100708
  Transmission Date: 20110219
  Serious: Yes (Hospitalization, Other)
  Sender: FDA-Public Use
  Company Number: PHHY2010NZ33667

PATIENT
  Sex: Male

DRUGS (1)
  1. SANDOSTATIN LAR [Suspect]
     Indication: THYROID CANCER
     Dosage: 10 MG, UNK
     Route: 030
     Dates: start: 20041122, end: 20041122

REACTIONS (5)
  - CHEST DISCOMFORT [None]
  - FLUSHING [None]
  - PRURITUS [None]
  - RASH [None]
  - RESPIRATORY DISORDER [None]
